FAERS Safety Report 16647822 (Version 3)
Quarter: 2019Q3

REPORT INFORMATION
  Report Type: Report from Study
  Country: US (occurrence: US)
  Receive Date: 20190730
  Receipt Date: 20190821
  Transmission Date: 20191004
  Serious: Yes (Other)
  Sender: FDA-Public Use
  Company Number: US-EISAI MEDICAL RESEARCH-EC-2019-058883

PATIENT
  Age: 75 Year
  Sex: Male
  Weight: 83 kg

DRUGS (17)
  1. ONDANSETRON [Concomitant]
     Active Substance: ONDANSETRON
  2. DRONABINOL. [Concomitant]
     Active Substance: DRONABINOL
  3. LOSARTAN. [Concomitant]
     Active Substance: LOSARTAN
  4. EZETIMIBE. [Concomitant]
     Active Substance: EZETIMIBE
  5. SYNTHROID [Concomitant]
     Active Substance: LEVOTHYROXINE SODIUM
  6. DIAZEPAM. [Concomitant]
     Active Substance: DIAZEPAM
  7. LENVIMA [Suspect]
     Active Substance: LENVATINIB
     Indication: THYROID CANCER
     Route: 048
     Dates: start: 20190703, end: 201907
  8. FAMOTIDINE. [Concomitant]
     Active Substance: FAMOTIDINE
  9. CLOTRIMAZOLE-BETAMETHA [Concomitant]
  10. LENVIMA [Suspect]
     Active Substance: LENVATINIB
     Route: 048
     Dates: start: 2019, end: 20190806
  11. AZELASTINE. [Concomitant]
     Active Substance: AZELASTINE HYDROCHLORIDE
  12. PRAVASTATIN. [Concomitant]
     Active Substance: PRAVASTATIN
  13. WARFARIN [Concomitant]
     Active Substance: WARFARIN
  14. TRAMADOL. [Concomitant]
     Active Substance: TRAMADOL
  15. CARVEDILOL. [Concomitant]
     Active Substance: CARVEDILOL
  16. PROCHLORPERAZINE MALEA [Concomitant]
  17. HYDROCORTISONE ACETATE. [Concomitant]
     Active Substance: HYDROCORTISONE ACETATE

REACTIONS (12)
  - Cerebrovascular accident [Recovering/Resolving]
  - Fall [Recovered/Resolved]
  - Headache [Unknown]
  - Weight decreased [Unknown]
  - Vision blurred [Unknown]
  - White blood cell count decreased [Unknown]
  - Blood pressure increased [Recovering/Resolving]
  - Platelet count decreased [Not Recovered/Not Resolved]
  - Balance disorder [Recovered/Resolved]
  - Speech disorder [Unknown]
  - Asthenia [Unknown]
  - Hyperhidrosis [Unknown]

NARRATIVE: CASE EVENT DATE: 2019
